FAERS Safety Report 6429038-X (Version None)
Quarter: 2009Q4

REPORT INFORMATION
  Report Type: 
  Country: None (occurrence: None)
  Receive Date: 20091105
  Receipt Date: 20091022
  Transmission Date: 20100525
  Serious: No
  Sender: FDA-Public Use
  Company Number: US-ROXANE LABORATORIES, INC.-2009-RO-01088RO

PATIENT
  Sex: Female

DRUGS (1)
  1. ZALEPLON [Suspect]
     Indication: INSOMNIA
     Dosage: 10 MG
     Route: 048

REACTIONS (1)
  - DRUG INEFFECTIVE [None]
